FAERS Safety Report 18579775 (Version 1)
Quarter: 2020Q4

REPORT INFORMATION
  Report Type: Spontaneous
  Country: SE (occurrence: SE)
  Receive Date: 20201204
  Receipt Date: 20201204
  Transmission Date: 20210114
  Serious: Yes (Hospitalization)
  Sender: FDA-Public Use
  Company Number: SE-PFIZER INC-2020475995

PATIENT
  Age: 75 Year
  Sex: Male

DRUGS (11)
  1. MESTINON [Concomitant]
     Active Substance: PYRIDOSTIGMINE BROMIDE
     Dosage: 480 MG, DAILY
  2. IRBESARTAN. [Concomitant]
     Active Substance: IRBESARTAN
     Dosage: 300 MG, DAILY
  3. NITROLINGUAL [Concomitant]
     Active Substance: NITROGLYCERIN
     Dosage: 1-2 DOSES, AS NEEDED
  4. TROMBYL [Concomitant]
     Active Substance: ASPIRIN
     Dosage: 75 MG, DAILY
  5. FELODIPINE. [Concomitant]
     Active Substance: FELODIPINE
     Dosage: 5 MG, DAILY
  6. LORATADINE. [Concomitant]
     Active Substance: LORATADINE
     Dosage: UNK
  7. ALVEDON [Concomitant]
     Active Substance: ACETAMINOPHEN
     Dosage: UNK
  8. EZETROL [Concomitant]
     Active Substance: EZETIMIBE
     Dosage: 10 MG, DAILY
  9. ATORVASTATIN [Concomitant]
     Active Substance: ATORVASTATIN
     Dosage: 1 DOSE AS NEEDED
  10. INSULATARD [INSULIN HUMAN INJECTION, ISOPHANE] [Concomitant]
     Active Substance: INSULIN HUMAN
     Dosage: 76 IU, DAILY(60 IU AT 8:00; 16 IU AT 20:00)
  11. SOLU-MEDROL [Suspect]
     Active Substance: METHYLPREDNISOLONE SODIUM SUCCINATE
     Dosage: 2 G, DAILY
     Dates: start: 20201030, end: 20201031

REACTIONS (2)
  - Dyspnoea [Recovered/Resolved]
  - Respiratory muscle weakness [Recovered/Resolved]

NARRATIVE: CASE EVENT DATE: 202010
